FAERS Safety Report 9301810 (Version 1)
Quarter: 2013Q2

REPORT INFORMATION
  Report Type: Spontaneous
  Country: US (occurrence: US)
  Receive Date: 20130521
  Receipt Date: 20130521
  Transmission Date: 20140414
  Serious: No
  Sender: FDA-Public Use
  Company Number: US-TEVA-347204USA

PATIENT
  Age: 52 Year
  Sex: Male

DRUGS (2)
  1. FENTORA [Suspect]
     Indication: COMPLEX REGIONAL PAIN SYNDROME
     Dosage: TID/PRN
     Route: 002
  2. FENTANYL [Concomitant]
     Indication: COMPLEX REGIONAL PAIN SYNDROME
     Dosage: 200 MICROGRAM DAILY;
     Route: 062
     Dates: start: 201202

REACTIONS (2)
  - Testicular atrophy [Not Recovered/Not Resolved]
  - Off label use [Unknown]
